FAERS Safety Report 11245266 (Version 4)
Quarter: 2015Q4

REPORT INFORMATION
  Report Type: Spontaneous
  Country: JP (occurrence: JP)
  Receive Date: 20150707
  Receipt Date: 20151008
  Transmission Date: 20160304
  Serious: Yes (Death)
  Sender: FDA-Public Use
  Company Number: JP-SA-2015SA094406

PATIENT
  Age: 65 Year
  Sex: Male
  Weight: 73 kg

DRUGS (14)
  1. ELPLAT [Suspect]
     Active Substance: OXALIPLATIN
     Indication: RECTAL CANCER
     Dosage: FORM:INFUSION SOLUTION, INJECTION
     Route: 041
     Dates: start: 20150608, end: 20150608
  2. 5-FU [Suspect]
     Active Substance: FLUOROURACIL
     Indication: RECTAL CANCER
     Route: 040
     Dates: start: 20150622, end: 20150622
  3. WARFARIN [Concomitant]
     Active Substance: WARFARIN
     Route: 048
     Dates: start: 20100715
  4. ZANTAC [Concomitant]
     Active Substance: RANITIDINE HYDROCHLORIDE
     Dates: start: 20150608, end: 20150622
  5. ELPLAT [Suspect]
     Active Substance: OXALIPLATIN
     Indication: RECTAL CANCER
     Dosage: FORM:INFUSION SOLUTION, INJECTION
     Route: 041
     Dates: start: 20150622, end: 20150622
  6. ISOVORIN [Suspect]
     Active Substance: LEUCOVORIN CALCIUM
     Indication: RECTAL CANCER
     Dosage: 350 MG/BODY
     Route: 041
     Dates: start: 20150608, end: 20150608
  7. ISOVORIN [Suspect]
     Active Substance: LEUCOVORIN CALCIUM
     Indication: RECTAL CANCER
     Route: 041
     Dates: start: 20150622, end: 20150622
  8. BAYASPIRIN [Concomitant]
     Active Substance: ASPIRIN
     Route: 065
     Dates: start: 20110517, end: 20150624
  9. OLIVES [Concomitant]
     Active Substance: LIDOCAINE HYDROCHLORIDE
     Dates: start: 20150609, end: 20150610
  10. 5-FU [Suspect]
     Active Substance: FLUOROURACIL
     Indication: RECTAL CANCER
     Route: 041
     Dates: start: 20150608, end: 20150608
  11. 5-FU [Suspect]
     Active Substance: FLUOROURACIL
     Indication: RECTAL CANCER
     Route: 041
     Dates: start: 20150622, end: 20150622
  12. DECADRON [Concomitant]
     Active Substance: DEXAMETHASONE
     Dates: start: 20150608, end: 20150622
  13. 5-FU [Suspect]
     Active Substance: FLUOROURACIL
     Indication: RECTAL CANCER
     Route: 040
     Dates: start: 20150608, end: 20150608
  14. GRANISETRON [Concomitant]
     Active Substance: GRANISETRON
     Dates: start: 20150608, end: 20150622

REACTIONS (1)
  - Prinzmetal angina [Fatal]

NARRATIVE: CASE EVENT DATE: 20150609
